FAERS Safety Report 4659891-1 (Version None)
Quarter: 2005Q2

REPORT INFORMATION
  Report Type: 
  Country: None (occurrence: None)
  Receive Date: 20050512
  Receipt Date: 20050506
  Transmission Date: 20051028
  Serious: Yes (Other)
  Sender: FDA-Public Use
  Company Number: PHRM2005FR01467

PATIENT
  Sex: Male

DRUGS (1)
  1. FRACTAL [Suspect]
     Dosage: 80 MG, QD
     Route: 048
     Dates: start: 20040503

REACTIONS (2)
  - EMPHYSEMATOUS BULLA [None]
  - INTERSTITIAL LUNG DISEASE [None]
